FAERS Safety Report 8126463-6 (Version None)
Quarter: 2012Q1

REPORT INFORMATION
  Report Type: 
  Country: None (occurrence: None)
  Receive Date: 20120209
  Receipt Date: 20111212
  Transmission Date: 20120608
  Serious: Yes (Other)
  Sender: FDA-Public Use
  Company Number: PHHY2011JP77891

PATIENT
  Sex: Female
  Weight: 61 kg

DRUGS (1)
  1. GLEEVEC [Suspect]
     Dosage: UNK
     Route: 015

REACTIONS (4)
  - NORMAL NEWBORN [None]
  - THREATENED LABOUR [None]
  - PREMATURE DELIVERY [None]
  - EXPOSURE VIA FATHER [None]
